FAERS Safety Report 4326917-4 (Version None)
Quarter: 2004Q1

REPORT INFORMATION
  Report Type: 
  Country: None (occurrence: None)
  Receive Date: 20040330
  Receipt Date: 19981117
  Transmission Date: 20041129
  Serious: Yes (Hospitalization)
  Sender: FDA-Public Use
  Company Number: US-ROCHE-109372

PATIENT
  Age: 28 Year
  Sex: Female
  Weight: 54.4 kg

DRUGS (2)
  1. ACCUTANE [Suspect]
     Indication: ACNE
     Route: 048
     Dates: start: 19830119, end: 19830201
  2. ACCUTANE [Suspect]
     Route: 048
     Dates: start: 19831024

REACTIONS (35)
  - ABDOMINAL PAIN [None]
  - ANXIETY [None]
  - BALANCE DISORDER [None]
  - BREAST FIBROSIS [None]
  - CEREBRAL HAEMORRHAGE [None]
  - COMPLICATIONS OF MATERNAL EXPOSURE TO THERAPEUTIC DRUGS [None]
  - DIARRHOEA [None]
  - DIZZINESS [None]
  - DRUG HYPERSENSITIVITY [None]
  - DRUG INEFFECTIVE [None]
  - DRUG SCREEN POSITIVE [None]
  - DYSARTHRIA [None]
  - FLANK PAIN [None]
  - FORCEPS DELIVERY [None]
  - GASTROENTERITIS [None]
  - HAEMATOCRIT DECREASED [None]
  - HAEMOGLOBIN DECREASED [None]
  - HEADACHE [None]
  - INFREQUENT BOWEL MOVEMENTS [None]
  - KIDNEY INFECTION [None]
  - LETHARGY [None]
  - NAUSEA [None]
  - NEOPLASM [None]
  - OVARIAN CYST [None]
  - PREGNANCY [None]
  - PYELONEPHRITIS [None]
  - RENAL DISORDER [None]
  - SEPSIS [None]
  - SOMNOLENCE [None]
  - TENDERNESS [None]
  - URINARY TRACT INFECTION [None]
  - VAGINAL HAEMORRHAGE [None]
  - VIRAL INFECTION [None]
  - VISION BLURRED [None]
  - VOMITING [None]
